FAERS Safety Report 15120881 (Version 2)
Quarter: 2020Q1

REPORT INFORMATION
  Report Type: Report from Study
  Country: US (occurrence: US)
  Receive Date: 20180709
  Receipt Date: 20200309
  Transmission Date: 20200409
  Serious: No
  Sender: FDA-Public Use
  Company Number: US-SA-2018SA174018

PATIENT
  Age: 79 Year
  Sex: Male

DRUGS (5)
  1. INSULIN GLARGINE [Suspect]
     Active Substance: INSULIN GLARGINE
     Indication: TYPE 2 DIABETES MELLITUS
     Dosage: UNK
  2. INSULIN GLARGINE [Suspect]
     Active Substance: INSULIN GLARGINE
     Dosage: ?DOSE DEPENDS ON SUGAR LEVEL, SOMETIME DAILY, PRN
     Route: 058
  3. INSULIN GLULISINE [Suspect]
     Active Substance: INSULIN GLULISINE
     Indication: DIABETES MELLITUS
     Dosage: UNK
  4. INSULIN GLARGINE [Suspect]
     Active Substance: INSULIN GLARGINE
     Dosage: 20 IU (20 UNITS IN THE MORNING AND 20 UNITS AT NIGHT A TOTAL OF 40 UNITS), BID
     Route: 058
  5. INSULIN GLULISINE [Suspect]
     Active Substance: INSULIN GLULISINE
     Dosage: TO BRING THE SUGAR DOWN QUICK, PRN

REACTIONS (6)
  - Product use issue [Unknown]
  - Joint swelling [Unknown]
  - Hip arthroplasty [Recovered/Resolved]
  - Post procedural infection [Recovered/Resolved]
  - Walking aid user [Unknown]
  - Weight increased [Unknown]
